FAERS Safety Report 6337820-2 (Version None)
Quarter: 2009Q3

REPORT INFORMATION
  Report Type: 
  Country: None (occurrence: None)
  Receive Date: 20090902
  Receipt Date: 20090828
  Transmission Date: 20100115
  Serious: Yes (Other)
  Sender: FDA-Public Use
  Company Number: A0804855A

PATIENT
  Age: 6 Year
  Sex: Male

DRUGS (2)
  1. LAMICTAL [Suspect]
     Dosage: 25MG PER DAY
     Route: 048
     Dates: start: 20090820
  2. ABILIFY [Concomitant]

REACTIONS (4)
  - IRRITABILITY [None]
  - MOOD SWINGS [None]
  - MORBID THOUGHTS [None]
  - SOCIAL AVOIDANT BEHAVIOUR [None]
